FAERS Safety Report 8635205 (Version 5)
Quarter: 2013Q4

REPORT INFORMATION
  Report Type: Spontaneous
  Country: US (occurrence: US)
  Receive Date: 20120626
  Receipt Date: 20131210
  Transmission Date: 20140711
  Serious: Yes (Hospitalization, Other)
  Sender: FDA-Public Use
  Company Number: US-PFIZER INC-2012148664

PATIENT
  Age: 72 Year
  Sex: Female

DRUGS (10)
  1. CELEBREX [Suspect]
     Indication: SPONDYLITIS
     Dosage: 200 MG, 2X/DAY
     Dates: start: 201204
  2. GLUCOTROL [Suspect]
     Dosage: UNK
  3. LYRICA [Suspect]
     Indication: NEURALGIA
     Dosage: 75 MG, 2X/DAY
     Dates: start: 201204
  4. CALAN SR [Suspect]
     Indication: HYPERTENSION
     Dosage: 240 MG, UNK
  5. CALAN [Suspect]
     Dosage: UNK
  6. POTASSIUM [Concomitant]
     Dosage: 200MG DAILY
  7. METFORMIN [Concomitant]
     Indication: TYPE 2 DIABETES MELLITUS
     Dosage: 500 MG, 2X/DAY
  8. THYROXINE [Concomitant]
     Indication: THYROID DISORDER
     Dosage: 125MG DAILY
  9. BABY ASPIRIN [Concomitant]
     Dosage: 1MG DAILY
  10. HYDROCHLOROTHIAZIDE [Concomitant]
     Indication: FLUID RETENTION
     Dosage: 12.5MG DAILY

REACTIONS (6)
  - Spinal disorder [Unknown]
  - Arthralgia [Unknown]
  - Back pain [Unknown]
  - Joint effusion [Unknown]
  - Sensation of foreign body [Unknown]
  - Nasopharyngitis [Recovering/Resolving]
